FAERS Safety Report 8842085 (Version 1)
Quarter: 2012Q4

REPORT INFORMATION
  Report Type: 
  Country: US (occurrence: US)
  Receive Date: 20121016
  Receipt Date: 20121016
  Transmission Date: 20130627
  Serious: Yes (Other)
  Sender: FDA-Public Use
  Company Number: US-PFIZER INC-2012256187

PATIENT
  Sex: Male

DRUGS (1)
  1. LYRICA [Suspect]
     Dosage: UNK
     Dates: start: 20041001

REACTIONS (3)
  - Cardiac disorder [Unknown]
  - Nervous system disorder [Unknown]
  - Insomnia [Unknown]
